FAERS Safety Report 4375772-5 (Version None)
Quarter: 2004Q2

REPORT INFORMATION
  Report Type: 
  Country: None (occurrence: None)
  Receive Date: 20040610
  Receipt Date: 20031121
  Transmission Date: 20050107
  Serious: Yes (Hospitalization, Disabling)
  Sender: FDA-Public Use
  Company Number: US-MERCK-0311USA02532

PATIENT
  Age: 35 Year
  Sex: Male
  Weight: 91 kg

DRUGS (9)
  1. DARVOCET-N 100 [Concomitant]
     Indication: PAIN
     Route: 065
     Dates: start: 19980101, end: 20030101
  2. ZYRTEC [Concomitant]
     Indication: HYPERSENSITIVITY
     Route: 065
  3. PROZAC [Concomitant]
     Indication: DEPRESSION
     Route: 065
  4. MOTRIN [Concomitant]
     Route: 065
     Dates: start: 20000101
  5. SYNTHROID [Concomitant]
     Indication: THYROID DISORDER
     Route: 065
  6. NASONEX [Concomitant]
     Indication: HYPERSENSITIVITY
     Route: 065
  7. SERZONE [Concomitant]
     Indication: DEPRESSION
     Route: 065
     Dates: start: 20000801, end: 20001001
  8. VIOXX [Suspect]
     Indication: INFLAMMATION
     Route: 048
     Dates: start: 20000202, end: 20030110
  9. VIOXX [Suspect]
     Indication: PAIN
     Route: 048
     Dates: start: 20000202, end: 20030110

REACTIONS (8)
  - AMNESIA [None]
  - ANXIETY [None]
  - BLOOD CHOLESTEROL INCREASED [None]
  - CEREBROVASCULAR ACCIDENT [None]
  - DEPRESSION [None]
  - INTRACRANIAL ANEURYSM [None]
  - MENTAL DISABILITY [None]
  - STRESS SYMPTOMS [None]
